FAERS Safety Report 12337362 (Version 2)
Quarter: 2016Q3

REPORT INFORMATION
  Report Type: Spontaneous
  Country: US (occurrence: US)
  Receive Date: 20160505
  Receipt Date: 20160704
  Transmission Date: 20161109
  Serious: No
  Sender: FDA-Public Use
  Company Number: US-ASTRAZENECA-2016SE46902

PATIENT
  Age: 73 Year
  Sex: Female
  Weight: 73.9 kg

DRUGS (3)
  1. NEXIUM [Suspect]
     Active Substance: ESOMEPRAZOLE MAGNESIUM
     Indication: GASTROOESOPHAGEAL REFLUX DISEASE
     Dosage: 20 OR 40 MG, TWO TIMES A DAY
     Route: 048
     Dates: start: 2010, end: 2015
  2. FLUTICASONE [Concomitant]
     Active Substance: FLUTICASONE\FLUTICASONE PROPIONATE
     Indication: SINUS DISORDER
     Dosage: 1 OR 2 SPRAYS
     Route: 045
  3. LISINOPRIL. [Suspect]
     Active Substance: LISINOPRIL
     Indication: BLOOD PRESSURE ABNORMAL
     Route: 048

REACTIONS (4)
  - Intentional product misuse [Unknown]
  - Visual impairment [Unknown]
  - Abdominal pain [Unknown]
  - Hepatitis [Unknown]

NARRATIVE: CASE EVENT DATE: 2010
